FAERS Safety Report 25241098 (Version 1)
Quarter: 2025Q2

REPORT INFORMATION
  Report Type: Spontaneous
  Country: US (occurrence: US)
  Receive Date: 20250425
  Receipt Date: 20250425
  Transmission Date: 20250716
  Serious: No
  Sender: PFIZER
  Company Number: US-PFIZER INC-PV202500049340

PATIENT
  Age: 24 Year
  Sex: Male

DRUGS (1)
  1. NURTEC ODT [Suspect]
     Active Substance: RIMEGEPANT SULFATE
     Indication: Migraine prophylaxis
     Dosage: 75 MG, ALTERNATE DAY (TAKE 1 TABLET EVERY OTHER DAY BY ORAL ROUTE)
     Route: 048

REACTIONS (4)
  - Therapeutic product effect incomplete [Unknown]
  - Weight decreased [Unknown]
  - Neck pain [Unknown]
  - Depression [Unknown]
